FAERS Safety Report 25064696 (Version 2)
Quarter: 2025Q2

REPORT INFORMATION
  Report Type: Report from Study
  Country: US (occurrence: US)
  Receive Date: 20250311
  Receipt Date: 20250410
  Transmission Date: 20250716
  Serious: Yes (Other)
  Sender: JOHNSON AND JOHNSON
  Company Number: US-JNJFOC-20250268151

PATIENT
  Sex: Female

DRUGS (30)
  1. GUSELKUMAB [Suspect]
     Active Substance: GUSELKUMAB
     Indication: Psoriasis
     Route: 065
  2. AZITHROMYCIN [Concomitant]
     Active Substance: AZITHROMYCIN
  3. CHLORTHALIDONE [Concomitant]
     Active Substance: CHLORTHALIDONE
  4. LOSARTAN POTASSIUM [Concomitant]
     Active Substance: LOSARTAN POTASSIUM
  5. METHYLPREDNISOLONE [Concomitant]
     Active Substance: METHYLPREDNISOLONE
  6. VITAMIN D3 [Concomitant]
     Active Substance: CHOLECALCIFEROL
  7. ALBUTEROL SULFATE [Concomitant]
     Active Substance: ALBUTEROL SULFATE
  8. BACLOFEN [Concomitant]
     Active Substance: BACLOFEN
  9. DIPHENHYDRAMINE HYDROCHLORIDE [Concomitant]
     Active Substance: DIPHENHYDRAMINE HYDROCHLORIDE
  10. CARAFATE [Concomitant]
     Active Substance: SUCRALFATE
  11. CLARITIN-D NOS [Concomitant]
     Active Substance: LORATADINE\PSEUDOEPHEDRINE SULFATE
  12. CYCLOBENZAPRINE [Concomitant]
     Active Substance: CYCLOBENZAPRINE
  13. DILAUDID [Concomitant]
     Active Substance: HYDROMORPHONE HYDROCHLORIDE
  14. DUPIXENT [Concomitant]
     Active Substance: DUPILUMAB
  15. GABAPENTIN [Concomitant]
     Active Substance: GABAPENTIN
  16. IPRATROPIUM [Concomitant]
     Active Substance: IPRATROPIUM
  17. LACTULOSE AGD [Concomitant]
  18. LACTULOSE AGD [Concomitant]
  19. MUPIROCIN [Concomitant]
     Active Substance: MUPIROCIN
  20. MYRBETRIQ [Concomitant]
     Active Substance: MIRABEGRON
  21. PRILOSEC [Concomitant]
     Active Substance: OMEPRAZOLE MAGNESIUM
  22. ROSUVASTATIN [Concomitant]
     Active Substance: ROSUVASTATIN
  23. TRILEPTAL [Concomitant]
     Active Substance: OXCARBAZEPINE
  24. SINGULAIR [Concomitant]
     Active Substance: MONTELUKAST SODIUM
  25. TYLENOL [Concomitant]
     Active Substance: ACETAMINOPHEN
  26. VITAMIN B12 [Concomitant]
     Active Substance: CYANOCOBALAMIN
  27. VITAMIN D NOS [Concomitant]
     Active Substance: CHOLECALCIFEROL\ERGOCALCIFEROL
  28. VRAYLAR [Concomitant]
     Active Substance: CARIPRAZINE
  29. ASPIRIN [Concomitant]
     Active Substance: ASPIRIN
  30. METHOTREXATE [Concomitant]
     Active Substance: METHOTREXATE

REACTIONS (6)
  - Bronchitis chronic [Unknown]
  - Rheumatoid arthritis [Unknown]
  - Infection [Unknown]
  - Device deployment issue [Unknown]
  - Psoriasis [Unknown]
  - Ear pain [Unknown]
